FAERS Safety Report 21810736 (Version 1)
Quarter: 2023Q1

REPORT INFORMATION
  Report Type: Spontaneous
  Country: TR (occurrence: TR)
  Receive Date: 20230103
  Receipt Date: 20230103
  Transmission Date: 20230417
  Serious: Yes (Other)
  Sender: FDA-Public Use
  Company Number: TR-LGC-011420

PATIENT
  Age: 30 Year
  Sex: Female
  Weight: 62 kg

DRUGS (2)
  1. FACTIVE [Suspect]
     Active Substance: GEMIFLOXACIN MESYLATE
     Indication: Influenza
     Route: 048
     Dates: start: 20221206, end: 20221212
  2. FIXDUAL 5 mg/10 mg film-coated tablet (Levocetirizine dihydrochlori... [Concomitant]

REACTIONS (7)
  - Drug ineffective for unapproved indication [None]
  - Hallucination [Recovered/Resolved]
  - Urticaria [Recovered/Resolved]
  - Lymphadenopathy [Not Recovered/Not Resolved]
  - Muscle contractions involuntary [Recovered/Resolved]
  - Syncope [Recovered/Resolved]
  - Dyspnoea [Recovered/Resolved]

NARRATIVE: CASE EVENT DATE: 20221213
